FAERS Safety Report 6082863-X (Version None)
Quarter: 2009Q1

REPORT INFORMATION
  Report Type: 
  Country: None (occurrence: None)
  Receive Date: 20090202
  Receipt Date: 20070123
  Transmission Date: 20090719
  Serious: No
  Sender: FDA-Public Use
  Company Number: 256145

PATIENT
  Age: 16 Year
  Sex: Female
  Weight: 63.5 kg

DRUGS (8)
  1. NOVOLOG [Suspect]
     Indication: TYPE 1 DIABETES MELLITUS
     Dosage: 24 IU + SLIDING SCALE, SUBCUTAN.-PUMP ; SUBCUTAN.-PUMP
     Dates: start: 20060201, end: 20061011
  2. NOVOLOG [Suspect]
     Indication: TYPE 1 DIABETES MELLITUS
     Dosage: 24 IU + SLIDING SCALE, SUBCUTAN.-PUMP ; SUBCUTAN.-PUMP
     Dates: start: 20061020
  3. ZYRTEC [Concomitant]
  4. ZANTAC 150 [Concomitant]
  5. ALLEGRA /01314201/ (FEXOFENADINE) [Concomitant]
  6. SINGULAIR /01362601/ (MONTELUKAST) [Concomitant]
  7. ASPIRIN [Concomitant]
  8. PREDNISONE TAB [Concomitant]

REACTIONS (1)
  - HYPERSENSITIVITY [None]
